FAERS Safety Report 8144041-X (Version None)
Quarter: 2012Q1

REPORT INFORMATION
  Report Type: 
  Country: None (occurrence: None)
  Receive Date: 20120217
  Receipt Date: 20120217
  Transmission Date: 20120608
  Serious: Yes (Hospitalization, Other)
  Sender: FDA-Public Use
  Company Number: None

PATIENT
  Age: 28 Year
  Sex: Female
  Weight: 49.895 kg

DRUGS (1)
  1. LO LOESTRIN FE [Suspect]
     Indication: CONTRACEPTION
     Dosage: 1 PILL
     Route: 048
     Dates: start: 20120124, end: 20120216

REACTIONS (4)
  - INSOMNIA [None]
  - MUSCLE SPASMS [None]
  - HAEMORRHAGE [None]
  - PRODUCT QUALITY ISSUE [None]
